FAERS Safety Report 11531954 (Version 1)
Quarter: 2015Q3

REPORT INFORMATION
  Report Type: Spontaneous
  Country: BR (occurrence: BR)
  Receive Date: 20150921
  Receipt Date: 20150921
  Transmission Date: 20151125
  Serious: Yes (Hospitalization)
  Sender: FDA-Public Use
  Company Number: BR-PFIZER INC-2015094005

PATIENT
  Age: 29 Year
  Sex: Female
  Weight: 58 kg

DRUGS (4)
  1. MATERNA /02266601/ [Concomitant]
     Active Substance: MINERALS\VITAMINS
     Indication: VITAMIN SUPPLEMENTATION
     Dosage: 1 TABLET (UNSPECIFIED DOSE), DAILY
     Dates: start: 201502, end: 201509
  2. NORDETTE [Suspect]
     Active Substance: ETHINYL ESTRADIOL\LEVONORGESTREL
     Indication: CONTRACEPTION
     Dosage: 1 TABLET PER DAY, CYCLIC
     Route: 048
     Dates: start: 2005, end: 201502
  3. FOLIC ACID. [Concomitant]
     Active Substance: FOLIC ACID
     Indication: VITAMIN SUPPLEMENTATION
     Dosage: 1 TABLET (UNSPECIFIED DOSE), DAILY
     Dates: start: 201502, end: 201505
  4. FERROUS SULFATE [Concomitant]
     Active Substance: FERROUS SULFATE\FERROUS SULFATE, DRIED
     Indication: VITAMIN SUPPLEMENTATION
     Dosage: ONE TABLET (250 MG), UNSPECIFIED FREQUENCY
     Dates: start: 201502

REACTIONS (4)
  - Gestational hypertension [Recovering/Resolving]
  - Menstrual disorder [Unknown]
  - Inappropriate schedule of drug administration [Unknown]
  - Unintended pregnancy [Unknown]

NARRATIVE: CASE EVENT DATE: 20141215
